FAERS Safety Report 11067314 (Version 1)
Quarter: 2015Q2

REPORT INFORMATION
  Report Type: Report from Study
  Country: BR (occurrence: BR)
  Receive Date: 20150426
  Receipt Date: 20150426
  Transmission Date: 20150821
  Serious: Yes (Disabling, Other)
  Sender: FDA-Public Use
  Company Number: PHHY2015BR044077

PATIENT
  Sex: Female
  Weight: 52 kg

DRUGS (1)
  1. EXELON PATCH [Suspect]
     Active Substance: RIVASTIGMINE
     Indication: PRODUCT USED FOR UNKNOWN INDICATION
     Dosage: 9.5 MG, QD (PATCH 10)
     Route: 062

REACTIONS (11)
  - Gait disturbance [Unknown]
  - Bedridden [Unknown]
  - Decubitus ulcer [Recovering/Resolving]
  - Disease progression [Unknown]
  - Weight decreased [Unknown]
  - Speech disorder [Unknown]
  - Nervous system disorder [Unknown]
  - Walking aid user [Unknown]
  - Dysstasia [Unknown]
  - Abasia [Unknown]
  - Feeding disorder [Not Recovered/Not Resolved]

NARRATIVE: CASE EVENT DATE: 201503
